FAERS Safety Report 5247442-2 (Version None)
Quarter: 2007Q1

REPORT INFORMATION
  Report Type: 
  Country: None (occurrence: None)
  Receive Date: 20070220
  Receipt Date: 20070206
  Transmission Date: 20070707
  Serious: Yes (Hospitalization)
  Sender: FDA-Public Use
  Company Number: 2006SS000096

PATIENT
  Age: 29 Year
  Sex: Female
  Weight: 58.514 kg

DRUGS (8)
  1. MYOBLOC [Suspect]
     Indication: BACK PAIN
     Dosage: 18500 UNITS; IM
     Route: 030
  2. MYOBLOC [Suspect]
     Indication: MUSCLE SPASTICITY
     Dosage: 18500 UNITS; IM
     Route: 030
  3. MYOBLOC [Suspect]
     Indication: MUSCULOSKELETAL PAIN
     Dosage: 18500 UNITS; IM
     Route: 030
  4. MYOBLOC [Suspect]
     Indication: OFF LABEL USE
     Dosage: 18500 UNITS; IM
     Route: 030
  5. ESOMEPRAZOLE MAGNESIUM [Concomitant]
  6. VENLAFAXINE HCL [Concomitant]
  7. ZOLPIDEM [Concomitant]
  8. ORAL CONTRACEPTIVE NOS [Concomitant]

REACTIONS (8)
  - CHOKING [None]
  - DRY MOUTH [None]
  - DYSGEUSIA [None]
  - DYSPHAGIA [None]
  - DYSPHONIA [None]
  - SALIVARY HYPERSECRETION [None]
  - VISION BLURRED [None]
  - VOCAL CORD DISORDER [None]
